FAERS Safety Report 4525599-6 (Version None)
Quarter: 2004Q4

REPORT INFORMATION
  Report Type: 
  Country: None (occurrence: None)
  Receive Date: 20041116
  Receipt Date: 20041008
  Transmission Date: 20050328
  Serious: No
  Sender: FDA-Public Use
  Company Number: S04-USA-06475-01

PATIENT
  Age: 70 Year
  Sex: Male

DRUGS (10)
  1. NAMENDA [Suspect]
     Indication: DEMENTIA
     Dosage: 5 MG QD PO
     Route: 048
     Dates: start: 20040924, end: 20040930
  2. NAMENDA [Suspect]
     Indication: DEMENTIA
     Dosage: 10 MG QD PO
     Route: 048
     Dates: start: 20041001, end: 20041007
  3. NAMENDA [Suspect]
     Indication: DEMENTIA
     Dosage: 15 MG QD PO
     Route: 048
     Dates: start: 20041008
  4. LIPITOR [Concomitant]
  5. GLIPIZIDE [Concomitant]
  6. RANITIDINE [Concomitant]
  7. ALBUTEROL [Concomitant]
  8. THEOPHYLLINE [Concomitant]
  9. CELEBREX [Concomitant]
  10. TRAZODONE HCL [Concomitant]

REACTIONS (1)
  - CONSTIPATION [None]
